FAERS Safety Report 15287117 (Version 1)
Quarter: 2018Q3

REPORT INFORMATION
  Report Type: Spontaneous
  Country: FR (occurrence: FR)
  Receive Date: 20180817
  Receipt Date: 20180817
  Transmission Date: 20181010
  Serious: Yes (Death, Other)
  Sender: FDA-Public Use
  Company Number: FR-TEVA-2018-FR-942164

PATIENT
  Age: 43 Year
  Sex: Male
  Weight: 106 kg

DRUGS (2)
  1. TRAMADOL (CHLORHYDRATE DE) [Suspect]
     Active Substance: TRAMADOL HYDROCHLORIDE
     Indication: PAIN
     Route: 065
  2. MUPHORAN [Suspect]
     Active Substance: FOTEMUSTINE
     Indication: MALIGNANT MELANOMA STAGE IV
     Route: 042

REACTIONS (2)
  - Cholestasis [Recovered/Resolved]
  - Hepatitis [Recovered/Resolved]

NARRATIVE: CASE EVENT DATE: 20171230
